FAERS Safety Report 6830710-8 (Version None)
Quarter: 2010Q3

REPORT INFORMATION
  Report Type: 
  Country: None (occurrence: None)
  Receive Date: 20100712
  Receipt Date: 20100629
  Transmission Date: 20110219
  Serious: Yes (Life-Threatening, Hospitalization)
  Sender: FDA-Public Use
  Company Number: FR-BAYER-201031087GPV

PATIENT
  Age: 18 Year
  Sex: Female

DRUGS (2)
  1. YASMIN [Suspect]
     Indication: ACNE
     Route: 048
     Dates: start: 20090330, end: 20090414
  2. MINOCYCLINE HYDROCHLORIDE [Suspect]
     Indication: ACNE
     Route: 048
     Dates: start: 20090330, end: 20090414

REACTIONS (17)
  - CHEILITIS [None]
  - DRUG RASH WITH EOSINOPHILIA AND SYSTEMIC SYMPTOMS [None]
  - DYSPEPSIA [None]
  - EOSINOPHILIA [None]
  - FACE OEDEMA [None]
  - GAMMA-GLUTAMYLTRANSFERASE INCREASED [None]
  - LYMPHADENOPATHY [None]
  - LYMPHOCYTE COUNT INCREASED [None]
  - MENINGISM [None]
  - MUCOCUTANEOUS RASH [None]
  - PRURITUS [None]
  - PYREXIA [None]
  - RASH MACULO-PAPULAR [None]
  - RASH PUSTULAR [None]
  - SKIN EXFOLIATION [None]
  - TRANSAMINASES INCREASED [None]
  - VULVOVAGINAL DISCOMFORT [None]
